FAERS Safety Report 12602899 (Version 3)
Quarter: 2016Q4

REPORT INFORMATION
  Report Type: Report from Study
  Country: None (occurrence: NL)
  Receive Date: 20160728
  Receipt Date: 20161007
  Transmission Date: 20170207
  Serious: Yes (Hospitalization, Other)
  Sender: FDA-Public Use
  Company Number: NL-ABBVIE-16K-114-1687138-00

PATIENT
  Age: 73 Year
  Sex: Female

DRUGS (1)
  1. DUODOPA [Suspect]
     Active Substance: CARBIDOPA\LEVODOPA
     Indication: PARKINSON^S DISEASE
     Dosage: MD: 10.5, CD: 2.9, ED: 3.2
     Route: 050
     Dates: start: 20140926

REACTIONS (2)
  - Fall [Recovered/Resolved]
  - Subdural haematoma [Recovered/Resolved]

NARRATIVE: CASE EVENT DATE: 201607
